FAERS Safety Report 18687057 (Version 1)
Quarter: 2020Q4

REPORT INFORMATION
  Report Type: Spontaneous
  Country: US (occurrence: US)
  Receive Date: 20201231
  Receipt Date: 20201231
  Transmission Date: 20210114
  Serious: Yes (Other)
  Sender: FDA-Public Use
  Company Number: US-SA-2020SA369336

PATIENT

DRUGS (2)
  1. LUMIZYME [Suspect]
     Active Substance: ALGLUCOSIDASE ALFA
     Indication: GLYCOGEN STORAGE DISEASE TYPE II
     Dosage: 1400 MG, QOW
     Route: 042
     Dates: start: 20190314
  2. MARIJUANA [Concomitant]
     Active Substance: CANNABIS SATIVA SUBSP. INDICA TOP

REACTIONS (9)
  - Weight increased [Unknown]
  - Abdominal discomfort [Unknown]
  - Aspiration [Unknown]
  - Decreased appetite [Unknown]
  - Tracheal disorder [Unknown]
  - Weight decreased [Unknown]
  - Dysphagia [Unknown]
  - Oesophageal disorder [Unknown]
  - Diarrhoea [Unknown]
